FAERS Safety Report 6427928-5 (Version None)
Quarter: 2009Q4

REPORT INFORMATION
  Report Type: 
  Country: None (occurrence: None)
  Receive Date: 20091105
  Receipt Date: 20091021
  Transmission Date: 20100525
  Serious: Yes (Other)
  Sender: FDA-Public Use
  Company Number: TW-ROCHE-664307

PATIENT
  Sex: Female

DRUGS (16)
  1. MIRCERA [Suspect]
     Route: 058
     Dates: start: 20090701, end: 20091009
  2. RECORMON [Suspect]
     Route: 058
     Dates: start: 20040301, end: 20090701
  3. ARANESP [Suspect]
     Route: 058
     Dates: start: 20070801, end: 20091009
  4. EPREX [Suspect]
     Route: 058
     Dates: end: 20040301
  5. APROVEL [Suspect]
     Indication: HYPERTENSION
     Route: 048
  6. DILANTIN [Suspect]
     Route: 058
     Dates: start: 20081211
  7. FOLIC ACID [Concomitant]
     Dosage: FREQUENCY: QD
  8. KENTAMIN [Concomitant]
     Dosage: FREQUENCY: QD
  9. SENNOSIDE A+B [Concomitant]
     Dosage: FREQUENCY: QD (HS). DRUG NAME REPORTED: SENNOSIDE A+B (THROUGH).
  10. CLONIDINE HCL [Concomitant]
     Dosage: DRUG NAME: CLONIDINE (CATAPRESS)
  11. NIFECARD (NIFEDIPINE) [Concomitant]
     Dosage: DRUG NAME: NIFEDIPINE (NIFECARDIA)
  12. ALLOPURINOL [Concomitant]
     Dosage: DRUG NAME: SYNORID, FREQUENCY: QD
  13. CALCITRIOL [Concomitant]
     Dosage: DRUG NAME: U-CA, FREQUENCY: QOD
  14. DIPYRIDAMOLE [Concomitant]
  15. GEMFIBROZIL [Concomitant]
     Dosage: DRUG NAME: GEMD
  16. VERELAN [Concomitant]

REACTIONS (6)
  - APLASIA PURE RED CELL [None]
  - CONVULSION [None]
  - PARATHYROIDECTOMY [None]
  - RETICULOCYTE COUNT DECREASED [None]
  - SERUM FERRITIN INCREASED [None]
  - SMALL INTESTINAL HAEMORRHAGE [None]
